FAERS Safety Report 19700883 (Version 1)
Quarter: 2021Q3

REPORT INFORMATION
  Report Type: Report from Study
  Country: US (occurrence: US)
  Receive Date: 20210813
  Receipt Date: 20210813
  Transmission Date: 20211014
  Serious: Yes (Hospitalization)
  Sender: FDA-Public Use
  Company Number: US-PFIZER INC-202101008719

PATIENT
  Age: 61 Year
  Sex: Female
  Weight: 45.35 kg

DRUGS (2)
  1. PEMBROLIZUMAB. [Suspect]
     Active Substance: PEMBROLIZUMAB
     Indication: COLON CANCER
     Dosage: 200 MG, CYCLIC (Q21 DAYS)
     Route: 042
     Dates: start: 20210708, end: 20210728
  2. BINIMETINIB [Suspect]
     Active Substance: BINIMETINIB
     Indication: COLON CANCER
     Dosage: 45 MG, DAILY
     Route: 048
     Dates: start: 20210716, end: 20210730

REACTIONS (3)
  - Hypokalaemia [Recovering/Resolving]
  - Dyspepsia [Recovering/Resolving]
  - Hypophosphataemia [Recovering/Resolving]

NARRATIVE: CASE EVENT DATE: 20210805
